FAERS Safety Report 24196873 (Version 1)
Quarter: 2024Q3

REPORT INFORMATION
  Report Type: Report from Study
  Country: US (occurrence: US)
  Receive Date: 20240810
  Receipt Date: 20240810
  Transmission Date: 20241016
  Serious: Yes (Death)
  Sender: ABBVIE
  Company Number: US-ABBVIE-5874652

PATIENT
  Age: 66 Year
  Sex: Female

DRUGS (20)
  1. VENCLEXTA [Suspect]
     Active Substance: VENETOCLAX
     Indication: Chronic lymphocytic leukaemia
     Dosage: TAKE 1 PACKAGE BY MOUTH DIRECTED
     Route: 048
  2. VENCLEXTA [Suspect]
     Active Substance: VENETOCLAX
     Indication: Chronic lymphocytic leukaemia
     Dosage: TAKE 1 PACKAGE BY MOUTH DIRECTED
     Route: 048
  3. VENCLEXTA [Suspect]
     Active Substance: VENETOCLAX
     Indication: Chronic lymphocytic leukaemia
     Dosage: TAKE 1 PACKAGE BY MOUTH DIRECTED
     Route: 048
  4. ASPIRIN [Concomitant]
     Active Substance: ASPIRIN
     Indication: Product used for unknown indication
     Dosage: TAKE BY MOUTH
     Route: 048
  5. VITAMIN B COMPLEX [Concomitant]
     Active Substance: CYANOCOBALAMIN\DEXPANTHENOL\NIACINAMIDE\PYRIDOXINE HYDROCHLORIDE\RIBOFLAVIN 5^-PHOSPHATE SODIUM\THIA
     Indication: Product used for unknown indication
     Dosage: VITAMINS TAKE BY MOUTH.
     Route: 048
  6. CHOLECALCIFEROL [Concomitant]
     Active Substance: CHOLECALCIFEROL
     Indication: Product used for unknown indication
     Dosage: TAKE BY MOUTH.
     Route: 048
  7. Coenzyme Q 10 [Concomitant]
     Indication: Product used for unknown indication
     Dosage: TAKE BY MOUTH
     Route: 048
  8. LISINOPRIL [Concomitant]
     Active Substance: LISINOPRIL
     Indication: Product used for unknown indication
     Dosage: TAKE ONE TABLET BY MOUTH ONE TIME DAILY
     Route: 048
  9. MAGNESIUM [Concomitant]
     Active Substance: MAGNESIUM
     Indication: Product used for unknown indication
     Dosage: TAKE BY MOUTH ONCE A DAY.
     Route: 048
  10. MELATONIN [Concomitant]
     Active Substance: MELATONIN
     Indication: Product used for unknown indication
     Dosage: TAKE BY MOUTH AS NEEDED AS NEEDED
     Route: 048
  11. metFORMlN HCL [Concomitant]
     Indication: Product used for unknown indication
     Dosage: TAKE 1,000 MG BY MOUTH. TWICE DAY.
     Route: 048
  12. METOPROLOL TARTRATE [Concomitant]
     Active Substance: METOPROLOL TARTRATE
     Indication: Product used for unknown indication
     Dosage: TAKE 1 TABLET BY MOUTH TWICE A DAY
     Route: 048
  13. ONDANSETRON [Concomitant]
     Active Substance: ONDANSETRON
     Indication: Nausea
     Dosage: TAKE 2 TABLETS BY MOUTH EVERY 5 HOURS AS NEEDED
     Route: 048
  14. PROBIOTICS NOS [Concomitant]
     Active Substance: PROBIOTICS NOS
     Indication: Product used for unknown indication
     Dosage: TAKE BY MOUTH
     Route: 048
  15. ROSUVASTATIN CALCIUM [Concomitant]
     Active Substance: ROSUVASTATIN CALCIUM
     Indication: Product used for unknown indication
     Dosage: TAKE 40 MG BY MOUTH ONCE DAY.
     Route: 048
  16. TAMOXIFEN CITRATE [Concomitant]
     Active Substance: TAMOXIFEN CITRATE
     Indication: Product used for unknown indication
     Dosage: TAKE 1 TABLET BY MOUTH EVERY DAY
     Route: 048
  17. TRAMADOL HYDROCHLORIDE [Concomitant]
     Active Substance: TRAMADOL HYDROCHLORIDE
     Indication: Pain
     Dosage: TAKE 1 TABLET BY MOUTH EVERY 4 TO 6 HOURS AS NEEDED FOR PAIN, MAX DAILY AMOUNT: 300 MG,
     Route: 048
  18. VITAMIN C [Concomitant]
     Active Substance: ASCORBIC ACID
     Indication: Product used for unknown indication
     Dosage: TAKE BY MOUTH
     Route: 048
  19. VITAMIN E [Concomitant]
     Active Substance: .ALPHA.-TOCOPHEROL
     Indication: Product used for unknown indication
     Dosage: TAKE BY MOUTH
     Route: 048
  20. ALLOPURINOL [Concomitant]
     Active Substance: ALLOPURINOL
     Indication: Product used for unknown indication
     Dosage: TAKE 1 TABLET BY MOUTH ONCE A DAY.
     Route: 048

REACTIONS (1)
  - Death [Fatal]

NARRATIVE: CASE EVENT DATE: 20240630
